FAERS Safety Report 14943539 (Version 2)
Quarter: 2019Q4

REPORT INFORMATION
  Report Type: Spontaneous
  Country: IT (occurrence: IT)
  Receive Date: 20180528
  Receipt Date: 20191203
  Transmission Date: 20200122
  Serious: Yes (Other)
  Sender: FDA-Public Use
  Company Number: PHHY2018IT002501

PATIENT
  Age: 50 Year
  Sex: Male

DRUGS (1)
  1. GILENYA [Suspect]
     Active Substance: FINGOLIMOD HYDROCHLORIDE
     Indication: RELAPSING-REMITTING MULTIPLE SCLEROSIS
     Dosage: 0.5 MG, QD
     Route: 065
     Dates: start: 2011, end: 201705

REACTIONS (5)
  - Pneumonia [Recovered/Resolved]
  - Papilloma viral infection [Unknown]
  - Urinary tract infection [Recovered/Resolved]
  - Oropharyngeal squamous cell carcinoma [Unknown]
  - Tonsillar hypertrophy [Unknown]

NARRATIVE: CASE EVENT DATE: 201704
